FAERS Safety Report 4687804-5 (Version None)
Quarter: 2005Q2

REPORT INFORMATION
  Report Type: 
  Country: None (occurrence: None)
  Receive Date: 20050608
  Receipt Date: 20050608
  Transmission Date: 20051028
  Serious: No
  Sender: FDA-Public Use
  Company Number: None

PATIENT
  Sex: Female
  Weight: 68 kg

DRUGS (1)
  1. DEFEROXAMINE MESYLATE [Suspect]
     Indication: APLASTIC ANAEMIA
     Dosage: DEFEROXAMINE  2GM   SQ  QD
     Route: 058
     Dates: start: 20050209, end: 20050603

REACTIONS (3)
  - INJECTION SITE ERYTHEMA [None]
  - INJECTION SITE PAIN [None]
  - INJECTION SITE SWELLING [None]
